FAERS Safety Report 8273670-8 (Version None)
Quarter: 2012Q2

REPORT INFORMATION
  Report Type: 
  Country: None (occurrence: None)
  Receive Date: 20120411
  Receipt Date: 20120302
  Transmission Date: 20120825
  Serious: Yes (Hospitalization)
  Sender: FDA-Public Use
  Company Number: US-TEVA-326446USA

PATIENT
  Sex: Female
  Weight: 81.72 kg

DRUGS (3)
  1. NUVIGIL [Suspect]
     Indication: NARCOLEPSY
     Dosage: 250 MILLIGRAM;
     Route: 048
     Dates: start: 20120201, end: 20120201
  2. IMIPRAMINE [Concomitant]
     Indication: CATAPLEXY
     Dosage: 200 MILLIGRAM;
     Dates: start: 19750101
  3. DULOXETINE HYDROCHLORIDE [Concomitant]
     Indication: CATAPLEXY
     Dosage: 120 MILLIGRAM;
     Route: 048
     Dates: start: 20030101

REACTIONS (3)
  - PNEUMONIA PRIMARY ATYPICAL [None]
  - DYSPNOEA [None]
  - DRUG INEFFECTIVE [None]
